FAERS Safety Report 6922848-1 (Version None)
Quarter: 2010Q3

REPORT INFORMATION
  Report Type: 
  Country: None (occurrence: None)
  Receive Date: 20100813
  Receipt Date: 20100802
  Transmission Date: 20110219
  Serious: Yes (Other)
  Sender: FDA-Public Use
  Company Number: US-PFIZER INC-2010074083

PATIENT
  Sex: Male
  Weight: 73 kg

DRUGS (8)
  1. XANAX [Interacting]
     Indication: NERVOUSNESS
     Dosage: UNK
     Dates: start: 20100501, end: 20100501
  2. XANAX [Interacting]
     Indication: TENSION
  3. XANAX [Interacting]
     Indication: ANXIETY
  4. VICODIN [Interacting]
     Dosage: UNK
  5. IMODIUM [Suspect]
  6. LEVOXYL [Concomitant]
     Indication: THYROID DISORDER
     Dosage: UNK
  7. ACETAMINOPHEN [Concomitant]
     Indication: ARTHRITIS
     Dosage: UNK
  8. ACETYLSALICYLIC ACID [Concomitant]

REACTIONS (7)
  - DIARRHOEA [None]
  - DIZZINESS [None]
  - DRUG INEFFECTIVE [None]
  - DRUG INTERACTION [None]
  - GAIT DISTURBANCE [None]
  - VERTIGO [None]
  - WEIGHT DECREASED [None]
